FAERS Safety Report 13268718 (Version 1)
Quarter: 2017Q1

REPORT INFORMATION
  Report Type: Spontaneous
  Country: US (occurrence: US)
  Receive Date: 20170224
  Receipt Date: 20170224
  Transmission Date: 20170428
  Serious: Yes (Other)
  Sender: FDA-Public Use
  Company Number: US-INCYTE CORPORATION-2017IN001229

PATIENT
  Age: 39 Year
  Sex: Female

DRUGS (1)
  1. JAKAFI [Suspect]
     Active Substance: RUXOLITINIB
     Indication: POLYCYTHAEMIA VERA
     Dosage: 10 MG, BID (TWICE DAILY)
     Route: 048
     Dates: start: 20161013

REACTIONS (4)
  - Skin lesion [Unknown]
  - Fatigue [Unknown]
  - Platelet count increased [Unknown]
  - Weight increased [Unknown]

NARRATIVE: CASE EVENT DATE: 201701
